FAERS Safety Report 4347256-1 (Version None)
Quarter: 2004Q1

REPORT INFORMATION
  Report Type: 
  Country: None (occurrence: None)
  Receive Date: 20040325
  Receipt Date: 20040128
  Transmission Date: 20041129
  Serious: No
  Sender: FDA-Public Use
  Company Number: USA040157929

PATIENT
  Sex: Male

DRUGS (6)
  1. FORTEO [Suspect]
     Dates: start: 20040119
  2. CARBIDOPA AND LEVODOPA [Concomitant]
  3. VITAMIN C [Concomitant]
  4. VITAMIN E [Concomitant]
  5. ECOTRIN (ACETYLSALICYCLIC ACID) [Concomitant]
  6. LYCOPENE [Concomitant]

REACTIONS (1)
  - PAIN IN EXTREMITY [None]
